FAERS Safety Report 11711369 (Version 1)
Quarter: 2015Q4

REPORT INFORMATION
  Report Type: Spontaneous
  Country: US (occurrence: US)
  Receive Date: 20151104
  Receipt Date: 20151104
  Transmission Date: 20160304
  Serious: No
  Sender: FDA-Public Use
  Company Number: US-ELI_LILLY_AND_COMPANY-US201102002744

PATIENT
  Age: 68 Year
  Sex: Female

DRUGS (1)
  1. FORTEO [Suspect]
     Active Substance: TERIPARATIDE
     Indication: OSTEOPOROSIS

REACTIONS (9)
  - Injection site pain [Unknown]
  - Injection site haemorrhage [Unknown]
  - Arthralgia [Unknown]
  - Dyspnoea [Unknown]
  - Cough [Unknown]
  - Scab [Unknown]
  - Rash pruritic [Recovered/Resolved]
  - Injection site bruising [Unknown]
  - Pain in extremity [Unknown]
